FAERS Safety Report 8677550 (Version 3)
Quarter: 2014Q2

REPORT INFORMATION
  Report Type: Report from Study
  Country: SK (occurrence: SK)
  Receive Date: 20120723
  Receipt Date: 20140515
  Transmission Date: 20141212
  Serious: No
  Sender: FDA-Public Use
  Company Number: SK-BAYER-2012-072713

PATIENT
  Age: 22 Year
  Sex: Female
  Weight: 61 kg

DRUGS (2)
  1. QLAIRA [Suspect]
     Indication: POLYMENORRHOEA
     Dosage: UNK
     Dates: start: 20110628, end: 20120305
  2. DETRALEX [Concomitant]
     Dosage: 1 DF, BID
     Route: 048
     Dates: start: 2010

REACTIONS (1)
  - Limb discomfort [None]
